FAERS Safety Report 4393642-3 (Version None)
Quarter: 2004Q2

REPORT INFORMATION
  Report Type: 
  Country: None (occurrence: None)
  Receive Date: 20040621
  Receipt Date: 20011009
  Transmission Date: 20050107
  Serious: Yes (Other)
  Sender: FDA-Public Use
  Company Number: KII-2001-0007550

PATIENT
  Age: 47 Year
  Sex: Female

DRUGS (2)
  1. OXYCONTIN [Suspect]
     Indication: PAIN
  2. DURAGESIC [Suspect]
     Indication: PAIN

REACTIONS (2)
  - DRUG DEPENDENCE [None]
  - MEDICATION ERROR [None]
